FAERS Safety Report 5243154-X (Version None)
Quarter: 2007Q1

REPORT INFORMATION
  Report Type: 
  Country: None (occurrence: None)
  Receive Date: 20070221
  Receipt Date: 20070214
  Transmission Date: 20070707
  Serious: Yes (Hospitalization)
  Sender: FDA-Public Use
  Company Number: IT-PFIZER INC-2007012366

PATIENT
  Sex: Male

DRUGS (3)
  1. MEDROL [Suspect]
     Indication: RHEUMATOID ARTHRITIS
     Dosage: DAILY DOSE:4MG
     Route: 048
     Dates: start: 20040301, end: 20070209
  2. ETANERCEPT [Suspect]
     Indication: RHEUMATOID ARTHRITIS
     Dosage: DAILY DOSE:50MG
     Route: 058
     Dates: start: 20041119, end: 20061224
  3. METHOTREXATE [Suspect]
     Indication: RHEUMATOID ARTHRITIS
     Dosage: DAILY DOSE:10MG
     Route: 030
     Dates: start: 20041119, end: 20061224

REACTIONS (1)
  - DEEP VEIN THROMBOSIS [None]
